FAERS Safety Report 4713576-1 (Version None)
Quarter: 2005Q3

REPORT INFORMATION
  Report Type: 
  Country: None (occurrence: None)
  Receive Date: 20050713
  Receipt Date: 20050707
  Transmission Date: 20060218
  Serious: Yes (Other)
  Sender: FDA-Public Use
  Company Number: 200516262GDDC

PATIENT
  Age: 72 Year
  Sex: Female

DRUGS (5)
  1. ARAVA [Suspect]
     Indication: RHEUMATOID ARTHRITIS
     Dosage: DOSE: UNK
     Route: 048
     Dates: start: 20000701
  2. PREDNISOLONE [Concomitant]
  3. ACETAMINOPHEN [Concomitant]
     Dosage: DOSE: UNK
  4. CODEINE [Concomitant]
     Dosage: DOSE: UNK
  5. BRICANYL [Concomitant]
     Dosage: DOSE: UNK

REACTIONS (1)
  - LIP NEOPLASM MALIGNANT STAGE UNSPECIFIED [None]
